FAERS Safety Report 11852749 (Version 2)
Quarter: 2015Q4

REPORT INFORMATION
  Report Type: Spontaneous
  Country: US (occurrence: US)
  Receive Date: 20151218
  Receipt Date: 20151222
  Transmission Date: 20160305
  Serious: Yes (Other)
  Sender: FDA-Public Use
  Company Number: US-PFIZER INC-2015453200

PATIENT
  Age: 81 Year
  Sex: Female
  Weight: 68.95 kg

DRUGS (18)
  1. GEODON [Suspect]
     Active Substance: ZIPRASIDONE HYDROCHLORIDE\ZIPRASIDONE MESYLATE
     Dosage: UNK
     Route: 042
     Dates: start: 20151215
  2. DIAMOX SEQUELS [Concomitant]
     Active Substance: ACETAZOLAMIDE
     Dosage: 250 MG, 1X/DAY
     Dates: start: 20151215
  3. HYDROCHLOROTHIAZIDE. [Concomitant]
     Active Substance: HYDROCHLOROTHIAZIDE
     Indication: FLUID RETENTION
     Dosage: 12.5 MG, 1X/DAY
     Dates: start: 20151213
  4. SEROQUEL [Concomitant]
     Active Substance: QUETIAPINE FUMARATE
     Dosage: 50 MG, 1X/DAY (2 DOSES)
     Dates: start: 20151215
  5. D5 IN 1/2 NACL WITH 20MEQ K [Concomitant]
     Dosage: 30ML/HOUR
     Route: 042
     Dates: start: 20151212, end: 20151215
  6. PRINIVIL [Concomitant]
     Active Substance: LISINOPRIL
     Indication: BLOOD PRESSURE ABNORMAL
     Dosage: 40 MG, 1X/DAY
     Dates: start: 20151210, end: 20151216
  7. TYLENOL [Concomitant]
     Active Substance: ACETAMINOPHEN
     Indication: PYREXIA
     Dosage: 650 MG, AS NEEDED
     Dates: start: 20151209
  8. LEXAPRO [Concomitant]
     Active Substance: ESCITALOPRAM OXALATE
     Indication: DEPRESSION
     Dosage: 10 MG, 1X/DAY
     Dates: start: 20151214
  9. PEPCID [Concomitant]
     Active Substance: FAMOTIDINE
     Indication: PROPHYLAXIS
     Dosage: 20 MG, 2X/DAY
     Dates: start: 20151213
  10. SPIRIVA [Concomitant]
     Active Substance: TIOTROPIUM BROMIDE MONOHYDRATE
     Indication: CHRONIC OBSTRUCTIVE PULMONARY DISEASE
     Dosage: 1 CAPSULE DAILY
     Dates: start: 20151212
  11. DULERA [Concomitant]
     Active Substance: FORMOTEROL FUMARATE DIHYDRATE\MOMETASONE FUROATE
     Indication: CHRONIC OBSTRUCTIVE PULMONARY DISEASE
     Dosage: [MOMETASONE FUROATE 200 MCG]/[FORMOTEROL FUMARATE 5 MCG] TWO PUFFS TWICE DAILY
     Dates: start: 20151215
  12. SEROQUEL [Concomitant]
     Active Substance: QUETIAPINE FUMARATE
     Indication: AGITATION
     Dosage: 25MG TABLET AT NIGHT
     Dates: start: 20151214, end: 20151214
  13. CONTINUOUS OXYGEN [Concomitant]
     Dosage: UNK
  14. ALBUTEROL. [Concomitant]
     Active Substance: ALBUTEROL
     Indication: CHRONIC OBSTRUCTIVE PULMONARY DISEASE
     Dosage: EVERY 4 HOURS WHILE AWAKE, EVERY 2 HOURS AS NEEDED
     Dates: start: 20151212
  15. LOVENOX [Concomitant]
     Active Substance: ENOXAPARIN SODIUM
     Indication: THROMBOSIS PROPHYLAXIS
     Dosage: 40 MG, 1X/DAY
     Route: 058
     Dates: start: 20151209
  16. NICODERM CQ [Concomitant]
     Active Substance: NICOTINE
     Indication: SMOKING CESSATION THERAPY
     Dosage: 14MG ONE PATCH DAILY
     Dates: start: 20151209
  17. MIRALAX [Concomitant]
     Active Substance: POLYETHYLENE GLYCOL 3350
     Indication: CONSTIPATION
     Dosage: 1 PACKET DAILY
     Dates: start: 20151213
  18. D5 IN 1/2 NACL WITH 20MEQ K [Concomitant]
     Indication: DEHYDRATION
     Dosage: 75ML/HOUR
     Route: 042
     Dates: start: 20151209, end: 20151211

REACTIONS (3)
  - Blood pressure decreased [Unknown]
  - Incorrect route of drug administration [Unknown]
  - Labile blood pressure [Unknown]

NARRATIVE: CASE EVENT DATE: 20151215
